FAERS Safety Report 12611169 (Version 2)
Quarter: 2016Q3

REPORT INFORMATION
  Report Type: Report from Study
  Country: CH (occurrence: CH)
  Receive Date: 20160801
  Receipt Date: 20160906
  Transmission Date: 20161109
  Serious: Yes (Hospitalization)
  Sender: FDA-Public Use
  Company Number: CH-SA-2016SA133385

PATIENT
  Age: 60 Year
  Sex: Male

DRUGS (18)
  1. 5-FU [Suspect]
     Active Substance: FLUOROURACIL
     Indication: COLORECTAL CANCER METASTATIC
     Route: 040
     Dates: start: 20150819, end: 20150819
  2. IRINOTECAN [Suspect]
     Active Substance: IRINOTECAN
     Indication: COLORECTAL CANCER METASTATIC
     Route: 041
     Dates: start: 20160627, end: 20160627
  3. ZESTRIL [Concomitant]
     Active Substance: LISINOPRIL
     Route: 065
     Dates: start: 20151015
  4. ZALTRAP [Suspect]
     Active Substance: ZIV-AFLIBERCEPT
     Indication: COLORECTAL CANCER METASTATIC
     Route: 041
     Dates: start: 20160627, end: 20160627
  5. IRINOTECAN [Suspect]
     Active Substance: IRINOTECAN
     Indication: COLORECTAL CANCER METASTATIC
     Route: 041
     Dates: start: 20150819, end: 20150819
  6. NOVALGIN [Concomitant]
     Active Substance: METAMIZOLE SODIUM
     Route: 065
     Dates: start: 20150513
  7. 5-FU [Suspect]
     Active Substance: FLUOROURACIL
     Indication: COLORECTAL CANCER METASTATIC
     Route: 041
     Dates: start: 20160627, end: 20160627
  8. PANTOZOL [Concomitant]
     Active Substance: PANTOPRAZOLE SODIUM
     Route: 065
     Dates: start: 20150729
  9. KETOCONAZOLE. [Concomitant]
     Active Substance: KETOCONAZOLE
     Route: 065
     Dates: start: 20160321
  10. ALUCOL [Concomitant]
     Active Substance: ALUMINUM HYDROXIDE\MAGNESIUM HYDROXIDE
     Route: 065
     Dates: start: 20160627, end: 20160705
  11. ZALTRAP [Suspect]
     Active Substance: ZIV-AFLIBERCEPT
     Indication: COLORECTAL CANCER METASTATIC
     Route: 041
     Dates: start: 20150819, end: 20150819
  12. LEUCOVORIN. [Suspect]
     Active Substance: LEUCOVORIN
     Indication: COLORECTAL CANCER METASTATIC
     Route: 041
     Dates: start: 20150819, end: 20150819
  13. LEUCOVORIN. [Suspect]
     Active Substance: LEUCOVORIN
     Indication: COLORECTAL CANCER METASTATIC
     Route: 041
     Dates: start: 20160627, end: 20160627
  14. TORASEMID [Concomitant]
     Active Substance: TORSEMIDE
     Route: 065
     Dates: start: 20160512
  15. ADALAT [Concomitant]
     Active Substance: NIFEDIPINE
     Route: 065
     Dates: start: 20141001
  16. 5-FU [Suspect]
     Active Substance: FLUOROURACIL
     Indication: COLORECTAL CANCER METASTATIC
     Route: 041
     Dates: start: 20150819
  17. TAMSULOSIN [Concomitant]
     Active Substance: TAMSULOSIN
     Route: 065
     Dates: start: 20160609
  18. NORVASC [Concomitant]
     Active Substance: AMLODIPINE BESYLATE
     Route: 065
     Dates: start: 20151001

REACTIONS (1)
  - Mechanical ileus [Recovered/Resolved]

NARRATIVE: CASE EVENT DATE: 20160630
